FAERS Safety Report 25682086 (Version 1)
Quarter: 2025Q3

REPORT INFORMATION
  Report Type: Spontaneous
  Country: CA (occurrence: CA)
  Receive Date: 20250814
  Receipt Date: 20250814
  Transmission Date: 20251020
  Serious: Yes (Other)
  Sender: CHEPLAPHARM
  Company Number: CA-CHEPLA-2025009692

PATIENT
  Age: 20 Year
  Sex: Female

DRUGS (1)
  1. CLONAZEPAM [Suspect]
     Active Substance: CLONAZEPAM
     Indication: Epilepsy

REACTIONS (10)
  - Abnormal behaviour [Unknown]
  - Condition aggravated [Unknown]
  - Confabulation [Unknown]
  - Developmental delay [Unknown]
  - Drug withdrawal convulsions [Unknown]
  - Mood swings [Unknown]
  - Obsessive thoughts [Unknown]
  - Repetitive speech [Unknown]
  - Therapy non-responder [Unknown]
  - Withdrawal syndrome [Unknown]
